FAERS Safety Report 5840672-8 (Version None)
Quarter: 2008Q3

REPORT INFORMATION
  Report Type: 
  Country: None (occurrence: None)
  Receive Date: 20080811
  Receipt Date: 20080804
  Transmission Date: 20090109
  Serious: Yes (Other)
  Sender: FDA-Public Use
  Company Number: PHEH2008US06851

PATIENT
  Sex: Female

DRUGS (1)
  1. TEKTURNA [Suspect]
     Dosage: 150 MG, UNK

REACTIONS (5)
  - DIZZINESS [None]
  - EXTRASYSTOLES [None]
  - HYPOTENSION [None]
  - PAIN [None]
  - SENSATION OF HEAVINESS [None]
